FAERS Safety Report 25750103 (Version 1)
Quarter: 2025Q3

REPORT INFORMATION
  Report Type: Spontaneous
  Country: US (occurrence: US)
  Receive Date: 20250902
  Receipt Date: 20250902
  Transmission Date: 20251021
  Serious: No
  Sender: SANOFI AVENTIS
  Company Number: US-SA-2025SA261187

PATIENT
  Sex: Male

DRUGS (3)
  1. ENOXAPARIN SODIUM [Suspect]
     Active Substance: ENOXAPARIN SODIUM
  2. LENVIMA [Suspect]
     Active Substance: LENVATINIB
     Indication: Renal cancer
     Dosage: ONE 10 MG CAP WITH ONE 4 MG CAP, ONCE DAILY
     Route: 048
     Dates: end: 202506
  3. EVEROLIMUS [Concomitant]
     Active Substance: EVEROLIMUS

REACTIONS (2)
  - Haematoma [Unknown]
  - Haemorrhage [Unknown]

NARRATIVE: CASE EVENT DATE: 20250601
